FAERS Safety Report 18966545 (Version 1)
Quarter: 2021Q1

REPORT INFORMATION
  Report Type: Spontaneous
  Country: US (occurrence: US)
  Receive Date: 20210303
  Receipt Date: 20210303
  Transmission Date: 20210420
  Serious: No
  Sender: FDA-Public Use
  Company Number: US-SA-2021SA071413

PATIENT
  Age: 31 Year
  Sex: Male
  Weight: 56.2 kg

DRUGS (9)
  1. NORMAL SALINE [Concomitant]
     Active Substance: SODIUM CHLORIDE
  2. ALDURAZYME [Suspect]
     Active Substance: LARONIDASE
     Indication: MUCOPOLYSACCHARIDOSIS
     Dosage: 1.08 MG/KG, QOW
     Route: 042
     Dates: start: 20161115, end: 20210226
  3. HEPARIN [Concomitant]
     Active Substance: HEPARIN SODIUM
  4. EPINEPHRINE. [Concomitant]
     Active Substance: EPINEPHRINE
  5. LMX4 [Concomitant]
     Active Substance: LIDOCAINE
  6. LUMIGAN [Concomitant]
     Active Substance: BIMATOPROST
     Route: 050
  7. DIPHENHYDRAMINE. [Concomitant]
     Active Substance: DIPHENHYDRAMINE
     Dosage: UNK
  8. METOPROLOL. [Concomitant]
     Active Substance: METOPROLOL
  9. COVID?19 VACCINE NOS. [Concomitant]
     Active Substance: COVID-19 VACCINE NOS
     Dosage: UNK
     Dates: start: 20210225

REACTIONS (5)
  - Headache [Unknown]
  - Nervousness [Unknown]
  - Blood pressure increased [Unknown]
  - Feeling cold [Unknown]
  - Product use issue [Unknown]

NARRATIVE: CASE EVENT DATE: 20161115
